FAERS Safety Report 21367481 (Version 1)
Quarter: 2022Q3

REPORT INFORMATION
  Report Type: Spontaneous
  Country: FR (occurrence: FR)
  Receive Date: 20220923
  Receipt Date: 20220923
  Transmission Date: 20221027
  Serious: Yes (Hospitalization)
  Sender: FDA-Public Use
  Company Number: None

PATIENT
  Age: 38 Year
  Sex: Male
  Weight: 77.5 kg

DRUGS (3)
  1. CLOZAPINE [Suspect]
     Active Substance: CLOZAPINE
     Indication: Product used for unknown indication
     Dosage: UNIT DOSE : 200 MG, DURATION : 33 DAYS, FREQUENCY TIME : 1 DAY
     Route: 065
     Dates: start: 20220413, end: 20220516
  2. TRIMEPRAZINE [Concomitant]
     Active Substance: TRIMEPRAZINE
     Indication: Insomnia
     Dosage: 15-15-30, UNIT DOSE : 60 DF
     Dates: start: 20220425
  3. MIRTAZAPINE [Concomitant]
     Active Substance: MIRTAZAPINE
     Indication: Depression
     Dosage: UNIT DOSE : 15 MG, FREQUENCY TIME :1 DAY
     Dates: start: 20220421

REACTIONS (3)
  - Pericardial effusion [Recovering/Resolving]
  - Eosinophilia [Recovered/Resolved]
  - Monocytosis [Recovered/Resolved]

NARRATIVE: CASE EVENT DATE: 20220420
